FAERS Safety Report 7258900-3 (Version None)
Quarter: 2011Q1

REPORT INFORMATION
  Report Type: 
  Country: None (occurrence: None)
  Receive Date: 20110129
  Receipt Date: 20100611
  Transmission Date: 20110831
  Serious: No
  Sender: FDA-Public Use
  Company Number: US-ABBOTT-10P-163-0651171-00

PATIENT
  Age: 43 Year
  Sex: Female

DRUGS (8)
  1. CHLORZOXANZONE [Concomitant]
     Indication: PAIN
  2. HUMIRA [Suspect]
     Indication: RHEUMATOID ARTHRITIS
  3. TRAZODONE [Concomitant]
     Indication: INSOMNIA
  4. SULFASALAZINE [Concomitant]
     Indication: ANTIINFLAMMATORY THERAPY
  5. METOPROLOL TARTRATE [Concomitant]
     Indication: HYPERTENSION
  6. PANTOPRAZOLE [Concomitant]
     Indication: GASTROOESOPHAGEAL REFLUX DISEASE
  7. CYMBALTA [Concomitant]
     Indication: DEPRESSION
  8. METHYLPREDNISOLONE [Concomitant]
     Indication: PRODUCT USED FOR UNKNOWN INDICATION

REACTIONS (3)
  - GAIT DISTURBANCE [None]
  - JOINT SWELLING [None]
  - JOINT RANGE OF MOTION DECREASED [None]
